FAERS Safety Report 8430755-0 (Version None)
Quarter: 2012Q2

REPORT INFORMATION
  Report Type: 
  Country: None (occurrence: None)
  Receive Date: 20120612
  Receipt Date: 20120531
  Transmission Date: 20120825
  Serious: Yes (Other)
  Sender: FDA-Public Use
  Company Number: US-ELI_LILLY_AND_COMPANY-US201012003178

PATIENT
  Sex: Female

DRUGS (3)
  1. FORTEO [Suspect]
     Dosage: 20 UG, QD
  2. FORTEO [Suspect]
     Indication: OSTEOPOROSIS
     Dosage: 20 UG, DAILY (1/D)
     Dates: start: 20101119
  3. FORTEO [Suspect]
     Dosage: 20 UG, QD

REACTIONS (9)
  - LUNG DISORDER [None]
  - HOSPICE CARE [None]
  - MYALGIA [None]
  - POLYMYOSITIS [None]
  - INJECTION SITE HAEMATOMA [None]
  - HEADACHE [None]
  - PAIN IN EXTREMITY [None]
  - FATIGUE [None]
  - STRESS [None]
